FAERS Safety Report 16598358 (Version 1)
Quarter: 2019Q3

REPORT INFORMATION
  Report Type: Report from Study
  Country: US (occurrence: US)
  Receive Date: 20190719
  Receipt Date: 20190719
  Transmission Date: 20191004
  Serious: Yes (Hospitalization, Other)
  Sender: FDA-Public Use
  Company Number: US-BRISTOL-MYERS SQUIBB COMPANY-BMS-2019-069871

PATIENT
  Age: 46 Year
  Sex: Female

DRUGS (2)
  1. IPILIMUMAB [Suspect]
     Active Substance: IPILIMUMAB
     Indication: NON-SMALL CELL LUNG CANCER
     Dosage: 1 MILLIGRAM/KILOGRAM, Q6WK
     Route: 042
     Dates: start: 20190116, end: 20190227
  2. NIVOLUMAB [Suspect]
     Active Substance: NIVOLUMAB
     Indication: NON-SMALL CELL LUNG CANCER
     Dosage: 3 MILLIGRAM/KILOGRAM, Q2WK
     Route: 042
     Dates: start: 20190116, end: 20190327

REACTIONS (7)
  - Pneumonia [Unknown]
  - Empyema [Recovered/Resolved]
  - Pneumothorax [Recovered/Resolved]
  - Malignant pleural effusion [Unknown]
  - Cellulitis [Recovered/Resolved]
  - Sepsis [Unknown]
  - Catheter site infection [Recovered/Resolved]

NARRATIVE: CASE EVENT DATE: 20190516
